FAERS Safety Report 11454433 (Version 1)
Quarter: 2015Q3

REPORT INFORMATION
  Report Type: Spontaneous
  Country: US (occurrence: US)
  Receive Date: 20150831
  Receipt Date: 20150831
  Transmission Date: 20151125
  Serious: Yes (Other)
  Sender: FDA-Public Use
  Company Number: US-ELI_LILLY_AND_COMPANY-US201001004363

PATIENT
  Sex: Male

DRUGS (3)
  1. CYMBALTA [Suspect]
     Active Substance: DULOXETINE HYDROCHLORIDE
     Dosage: 60 MG, UNK
  2. LORTAB [Concomitant]
     Active Substance: ACETAMINOPHEN\HYDROCODONE BITARTRATE
     Dosage: 10 MG, 4/D
  3. XANAX [Concomitant]
     Active Substance: ALPRAZOLAM
     Dosage: 2 MG, 3/D

REACTIONS (4)
  - Serotonin syndrome [Recovered/Resolved]
  - Nightmare [Recovered/Resolved]
  - Aggression [Recovered/Resolved]
  - Anxiety [Recovered/Resolved]
